FAERS Safety Report 8383600-6 (Version None)
Quarter: 2012Q2

REPORT INFORMATION
  Report Type: 
  Country: None (occurrence: None)
  Receive Date: 20120524
  Receipt Date: 20120518
  Transmission Date: 20120825
  Serious: Yes (Hospitalization)
  Sender: FDA-Public Use
  Company Number: US-INCYTE CORPORATION-2012IN000213

PATIENT
  Sex: Female
  Weight: 59 kg

DRUGS (15)
  1. ANAGRELIDE HCL [Concomitant]
     Dosage: 5 MG, UNK
  2. PRILOSEC [Concomitant]
     Dosage: 40 MG, QD
  3. AMLODIPINE BESYLATE [Concomitant]
     Dosage: 2.5 MG, QD
  4. PROPRANOLOL [Concomitant]
     Dosage: 160 MG, QD
  5. MIRAPEX ER [Concomitant]
     Dosage: 75 MG, QD
  6. CARBIDOPA AND LEVODOPA [Concomitant]
     Dosage: 25/100, QD
  7. LASIX [Concomitant]
  8. PRAMIPEXOLE DIHYDROCHLORIDE [Concomitant]
     Dosage: 25 MG, QD, PRN
  9. LACTULOSE [Concomitant]
  10. XIFAXAN [Concomitant]
  11. JAKAFI [Suspect]
     Indication: MYELOFIBROSIS
     Dosage: 15 MG, BID
     Route: 048
     Dates: start: 20120112, end: 20120203
  12. PROTONIX [Concomitant]
  13. JAKAFI [Suspect]
     Dosage: LOWER DOSE
  14. SPIRONOLACTONE [Concomitant]
     Dosage: 25 MG, QD
  15. GABAPENTIN [Concomitant]
     Dosage: 600 MG, QD

REACTIONS (2)
  - HEPATIC ENCEPHALOPATHY [None]
  - RED BLOOD CELL COUNT DECREASED [None]
